FAERS Safety Report 7492947-7 (Version None)
Quarter: 2011Q2

REPORT INFORMATION
  Report Type: 
  Country: None (occurrence: None)
  Receive Date: 20110520
  Receipt Date: 20110518
  Transmission Date: 20111010
  Serious: Yes (Hospitalization)
  Sender: FDA-Public Use
  Company Number: US-BRISTOL-MYERS SQUIBB COMPANY-15754443

PATIENT
  Age: 56 Year
  Sex: Male

DRUGS (8)
  1. MILK THISTLE [Concomitant]
     Indication: PROPHYLAXIS
     Route: 048
     Dates: start: 20000601
  2. VITAMIN B COMPLEX CAP [Concomitant]
     Dosage: 1DF:4TABS
     Dates: start: 20100101
  3. CLARITIN [Concomitant]
     Indication: HYPERSENSITIVITY
     Route: 048
     Dates: start: 20110311
  4. GRAPESEED EXTRACT [Concomitant]
     Indication: PROPHYLAXIS
     Route: 048
     Dates: start: 20000101
  5. VITAMIN D [Concomitant]
     Indication: MEDICAL DIET
     Route: 048
     Dates: start: 20050101
  6. CALCIUM CARBONATE [Concomitant]
     Indication: MEDICAL DIET
     Route: 048
     Dates: start: 20000101
  7. AMBIEN [Concomitant]
     Indication: INSOMNIA
     Dosage: 1DF:12TABS
     Dates: start: 20100201
  8. IPILIMUMAB [Suspect]
     Indication: MALIGNANT MELANOMA
     Route: 042
     Dates: start: 20100715

REACTIONS (2)
  - DEHYDRATION [None]
  - COLITIS [None]
